FAERS Safety Report 7500907-2 (Version None)
Quarter: 2011Q2

REPORT INFORMATION
  Report Type: 
  Country: None (occurrence: None)
  Receive Date: 20110524
  Receipt Date: 20110516
  Transmission Date: 20111010
  Serious: Yes (Death)
  Sender: FDA-Public Use
  Company Number: NL-CELGENEUS-114-C5013-11052005

PATIENT
  Sex: Male
  Weight: 85 kg

DRUGS (10)
  1. PANTOPRAZOL [Concomitant]
     Indication: PROPHYLAXIS
     Dosage: 20 MILLIGRAM
     Route: 048
     Dates: start: 20110510, end: 20110513
  2. LENALIDOMIDE [Suspect]
     Indication: PROSTATE CANCER
     Dosage: 25 MILLIGRAM
     Route: 048
     Dates: start: 20110510, end: 20110513
  3. ZOLEDRONIC ACID [Concomitant]
     Route: 051
     Dates: start: 20110511, end: 20110511
  4. ANTITHROMBOTIC AGENTS [Concomitant]
     Indication: THROMBOSIS PROPHYLAXIS
     Route: 065
  5. DOCETAXEL [Suspect]
     Indication: PROSTATE CANCER
     Route: 065
     Dates: start: 20110510, end: 20110510
  6. GRANISETRON HCL [Concomitant]
     Indication: PROPHYLAXIS
     Route: 048
     Dates: start: 20110510, end: 20110512
  7. CALCIUM CARBONATE [Concomitant]
     Dosage: 500 MILLIGRAM
     Route: 048
     Dates: start: 20110426, end: 20110513
  8. PREDNISONE TAB [Suspect]
     Indication: PROSTATE CANCER
     Dosage: 10 MILLIGRAM
     Route: 065
     Dates: start: 20110510, end: 20110513
  9. DEXAMETHASONE [Concomitant]
     Indication: PROPHYLAXIS
     Dosage: 8 MILLIGRAM
     Route: 048
     Dates: start: 20110510, end: 20110510
  10. ELIGARD [Concomitant]
     Indication: PROSTATE CANCER
     Route: 058
     Dates: start: 20080101, end: 20110513

REACTIONS (1)
  - MYOCARDIAL INFARCTION [None]
